FAERS Safety Report 10108435 (Version 1)
Quarter: 2014Q2

REPORT INFORMATION
  Report Type: Spontaneous
  Country: US (occurrence: US)
  Receive Date: 20140425
  Receipt Date: 20140425
  Transmission Date: 20141212
  Serious: Yes (Other)
  Sender: FDA-Public Use
  Company Number: US-PFIZER INC-2014111799

PATIENT
  Sex: Male

DRUGS (2)
  1. LYRICA [Suspect]
     Dosage: 25 MG, UNK
  2. LYRICA [Suspect]
     Dosage: 150, 3X/DAY

REACTIONS (2)
  - Renal impairment [Unknown]
  - Blood glucose abnormal [Unknown]
